FAERS Safety Report 4902751-9 (Version None)
Quarter: 2006Q1

REPORT INFORMATION
  Report Type: 
  Country: None (occurrence: None)
  Receive Date: 20060113
  Receipt Date: 20050308
  Transmission Date: 20060701
  Serious: Yes (Hospitalization, Other)
  Sender: FDA-Public Use
  Company Number: HQWYE597626AUG04

PATIENT
  Age: 67 Year
  Sex: Female
  Weight: 83.99 kg

DRUGS (10)
  1. PREMPRO [Suspect]
     Indication: HOT FLUSH
     Dosage: ORAL
     Route: 048
     Dates: start: 19980601
  2. MEDROXYPROGESTERONE [Suspect]
  3. PREMARIN [Suspect]
     Indication: HOT FLUSH
     Dosage: ORAL
     Route: 048
     Dates: start: 19700101, end: 19991201
  4. PROVERA [Suspect]
  5. LEVOTHYROXINE SODIUM [Concomitant]
  6. ATENOLOL [Concomitant]
  7. DIOVAN HCT [Concomitant]
  8. HYDRODIURIL [Concomitant]
  9. SYNTHROID [Concomitant]
  10. GLYBURIDE [Concomitant]

REACTIONS (1)
  - BREAST CANCER [None]
